FAERS Safety Report 5931320-7 (Version None)
Quarter: 2008Q4

REPORT INFORMATION
  Report Type: 
  Country: None (occurrence: None)
  Receive Date: 20081027
  Receipt Date: 20081014
  Transmission Date: 20090506
  Serious: Yes (Death)
  Sender: FDA-Public Use
  Company Number: RU-MERCK-0810RUS00004

PATIENT
  Sex: Male

DRUGS (1)
  1. ZOCOR [Suspect]
     Indication: MYOCARDIAL ISCHAEMIA
     Route: 048

REACTIONS (1)
  - SUDDEN CARDIAC DEATH [None]
